FAERS Safety Report 6181236-9 (Version None)
Quarter: 2009Q2

REPORT INFORMATION
  Report Type: 
  Country: None (occurrence: None)
  Receive Date: 20090506
  Receipt Date: 20090421
  Transmission Date: 20091009
  Serious: Yes (Death)
  Sender: FDA-Public Use
  Company Number: TW-GENENTECH-282089

PATIENT
  Age: 59 Year
  Sex: Male

DRUGS (3)
  1. AVASTIN [Suspect]
     Indication: GASTRIC CANCER
     Dosage: UNK
     Dates: start: 20080101
  2. XELODA [Concomitant]
     Indication: DRUG USE FOR UNKNOWN INDICATION
  3. CISPLATIN [Concomitant]
     Indication: DRUG USE FOR UNKNOWN INDICATION
     Dosage: UNK

REACTIONS (5)
  - BACTERAEMIA [None]
  - GASTROINTESTINAL PERFORATION [None]
  - PERITONITIS [None]
  - RENAL FAILURE ACUTE [None]
  - SEPTIC SHOCK [None]
